FAERS Safety Report 4984909-6 (Version None)
Quarter: 2006Q2

REPORT INFORMATION
  Report Type: 
  Country: None (occurrence: None)
  Receive Date: 20060427
  Receipt Date: 20060421
  Transmission Date: 20061013
  Serious: Yes (Death)
  Sender: FDA-Public Use
  Company Number: 20060402457

PATIENT
  Age: 23 Year
  Sex: Male

DRUGS (3)
  1. PIRITON [Suspect]
     Route: 048
     Dates: start: 20051230
  2. DUROGESIC PATCH [Suspect]
     Indication: ANALGESIC EFFECT
     Dosage: 100UGH SEE DOSAGE TEXT
     Route: 062
     Dates: start: 20051229, end: 20051230
  3. TEMAZEPAM [Suspect]
     Route: 065
     Dates: start: 20051230

REACTIONS (3)
  - DEATH [None]
  - DYSPNOEA [None]
  - PRURITUS [None]
